FAERS Safety Report 9869513 (Version 1)
Quarter: 2014Q1

REPORT INFORMATION
  Report Type: Spontaneous
  Country: AR (occurrence: None)
  Receive Date: 20140203
  Receipt Date: 20140203
  Transmission Date: 20141002
  Serious: Yes (Other)
  Sender: FDA-Public Use
  Company Number: VAL_02957_2014

PATIENT
  Sex: Female

DRUGS (1)
  1. PARLODEL [Suspect]
     Indication: PITUITARY TUMOUR BENIGN
     Route: 048
     Dates: start: 1996, end: 2012

REACTIONS (2)
  - Neoplasm progression [None]
  - Pituitary tumour benign [None]
